FAERS Safety Report 14531099 (Version 1)
Quarter: 2018Q1

REPORT INFORMATION
  Report Type: Spontaneous
  Country: US (occurrence: US)
  Receive Date: 20180213
  Receipt Date: 20180213
  Transmission Date: 20180509
  Serious: Yes (Life-Threatening, Hospitalization, Disabling)
  Sender: FDA-Public Use
  Company Number: None

PATIENT
  Sex: Male
  Weight: 81 kg

DRUGS (12)
  1. ATORVASTATIN [Concomitant]
     Active Substance: ATORVASTATIN
  2. VITAMIN E [Concomitant]
     Active Substance: .ALPHA.-TOCOPHEROL
  3. CO-Q 10 [Concomitant]
     Active Substance: UBIDECARENONE
  4. MULTIVITAMIN-MENS [Concomitant]
  5. NPLATE [Suspect]
     Active Substance: ROMIPLOSTIM
     Indication: IMMUNE THROMBOCYTOPENIC PURPURA
     Dates: start: 20171117, end: 20171220
  6. XARELTO [Concomitant]
     Active Substance: RIVAROXABAN
  7. ASPIRIN. [Concomitant]
     Active Substance: ASPIRIN
  8. TAMSULOSIN [Concomitant]
     Active Substance: TAMSULOSIN
  9. FOLIC ACID. [Concomitant]
     Active Substance: FOLIC ACID
  10. FISH OIL [Concomitant]
     Active Substance: FISH OIL
  11. METOPROLOL. [Concomitant]
     Active Substance: METOPROLOL
  12. ZETIA [Concomitant]
     Active Substance: EZETIMIBE

REACTIONS (1)
  - Thrombosis [None]

NARRATIVE: CASE EVENT DATE: 20180101
